FAERS Safety Report 7904419-3 (Version None)
Quarter: 2011Q4

REPORT INFORMATION
  Report Type: 
  Country: None (occurrence: None)
  Receive Date: 20111109
  Receipt Date: 20111101
  Transmission Date: 20120403
  Serious: Yes (Other)
  Sender: FDA-Public Use
  Company Number: US-BAYER-2011-106017

PATIENT
  Age: 36 Year
  Sex: Female
  Weight: 47.166 kg

DRUGS (9)
  1. BETASERON [Suspect]
     Dosage: 1 ML, QOD
     Route: 058
  2. BETASERON [Suspect]
     Dosage: 0.75 ML, QOD
     Route: 058
  3. LEVOTHYROXINE SODIUM [Concomitant]
  4. GABAPENTIN [Concomitant]
  5. AMITRIPTYLINE HCL [Concomitant]
  6. ZOLPIDEM [Concomitant]
  7. BETASERON [Suspect]
     Dosage: 0.5 ML, QOD
     Route: 058
  8. BETASERON [Suspect]
     Dosage: 0.25 ML, QOD
     Route: 058
  9. TYLENOL COLD [Concomitant]

REACTIONS (2)
  - MUSCULOSKELETAL STIFFNESS [None]
  - MUSCLE TWITCHING [None]
